FAERS Safety Report 15898663 (Version 1)
Quarter: 2019Q1

REPORT INFORMATION
  Report Type: Report from Study
  Country: IT (occurrence: IT)
  Receive Date: 20190201
  Receipt Date: 20190201
  Transmission Date: 20190417
  Serious: Yes (Hospitalization)
  Sender: FDA-Public Use
  Company Number: IT-ACCORD-104823

PATIENT
  Age: 65 Year
  Sex: Male

DRUGS (8)
  1. PLASIL [Concomitant]
     Active Substance: METOCLOPRAMIDE HYDROCHLORIDE
  2. TWICE [Concomitant]
  3. DUROGESIC [Concomitant]
     Active Substance: FENTANYL
  4. CARBOPLATIN. [Suspect]
     Active Substance: CARBOPLATIN
     Indication: HYPOPHARYNGEAL CANCER
     Route: 042
  5. CONGESCOR [Concomitant]
     Active Substance: BISOPROLOL
  6. ACETYLSALICYLIC ACID [Concomitant]
     Active Substance: ASPIRIN
  7. DELTACORTENE [Concomitant]
     Active Substance: PREDNISONE
  8. PANTORC [Concomitant]
     Active Substance: PANTOPRAZOLE SODIUM

REACTIONS (6)
  - Off label use [Unknown]
  - Aphthous ulcer [Recovering/Resolving]
  - Constipation [Recovering/Resolving]
  - Asthenia [Recovering/Resolving]
  - Pneumonia [Recovering/Resolving]
  - Hyperpyrexia [Recovering/Resolving]
